FAERS Safety Report 6303988-7 (Version None)
Quarter: 2009Q3

REPORT INFORMATION
  Report Type: 
  Country: None (occurrence: None)
  Receive Date: 20090810
  Receipt Date: 20090730
  Transmission Date: 20100115
  Serious: Yes (Life-Threatening, Hospitalization, Other)
  Sender: FDA-Public Use
  Company Number: JP-PFIZER INC-2009239493

PATIENT
  Age: 82 Year

DRUGS (9)
  1. CHAMPIX [Suspect]
     Dosage: UNK
     Route: 048
     Dates: start: 20090522
  2. TOWARAT [Suspect]
     Indication: HYPERTENSION
     Dosage: UNK
     Route: 048
     Dates: end: 20090705
  3. MONTELUKAST SODIUM [Concomitant]
     Dates: end: 20090705
  4. FORSENID [Concomitant]
     Indication: CONSTIPATION
     Route: 048
     Dates: end: 20090705
  5. BROTIZOLAM [Concomitant]
     Indication: INSOMNIA
     Route: 048
     Dates: end: 20090705
  6. SULTANOL [Concomitant]
     Indication: ASTHMA
     Dates: end: 20090705
  7. UNOPROSTONE ISOPROPYL [Concomitant]
     Indication: GLAUCOMA
     Route: 031
     Dates: end: 20090705
  8. HYALURONATE SODIUM [Concomitant]
     Indication: DRY EYE
     Route: 031
     Dates: end: 20090705
  9. KARY UNI [Concomitant]
     Indication: CATARACT
     Route: 031
     Dates: end: 20090705

REACTIONS (2)
  - AGRANULOCYTOSIS [None]
  - FEBRILE NEUTROPENIA [None]
